FAERS Safety Report 6892921-5 (Version None)
Quarter: 2010Q3

REPORT INFORMATION
  Report Type: 
  Country: None (occurrence: None)
  Receive Date: 20100731
  Receipt Date: 20081113
  Transmission Date: 20110219
  Serious: No
  Sender: FDA-Public Use
  Company Number: US-PFIZER INC-2008096769

PATIENT
  Sex: Female
  Weight: 90.9 kg

DRUGS (4)
  1. NEURONTIN [Suspect]
     Indication: MUSCLE SPASMS
     Dates: start: 19960101
  2. GABAPENTIN [Suspect]
     Indication: MUSCLE SPASMS
  3. ADVAIR DISKUS 100/50 [Concomitant]
  4. ALBUTEROL [Concomitant]

REACTIONS (4)
  - FEELING ABNORMAL [None]
  - MUSCLE SPASMS [None]
  - PAIN IN EXTREMITY [None]
  - TREMOR [None]
